FAERS Safety Report 16856739 (Version 2)
Quarter: 2020Q3

REPORT INFORMATION
  Report Type: Spontaneous
  Country: US (occurrence: US)
  Receive Date: 20190926
  Receipt Date: 20200831
  Transmission Date: 20201102
  Serious: Yes (Other)
  Sender: FDA-Public Use
  Company Number: US-GILEAD-2019-0429691

PATIENT
  Age: 54 Year
  Sex: Male
  Weight: 88.44 kg

DRUGS (25)
  1. LOSARTAN. [Concomitant]
     Active Substance: LOSARTAN
  2. TESTOSTERONE. [Concomitant]
     Active Substance: TESTOSTERONE
  3. REYATAZ [Concomitant]
     Active Substance: ATAZANAVIR SULFATE
  4. CICLOPIROX. [Concomitant]
     Active Substance: CICLOPIROX
  5. DOXYCYCLINE HYCLATE. [Concomitant]
     Active Substance: DOXYCYCLINE HYCLATE
  6. NORVIR [Concomitant]
     Active Substance: RITONAVIR
  7. CEPHALEXIN AMEL [Concomitant]
     Active Substance: CEPHALEXIN
  8. IRBESARTAN. [Concomitant]
     Active Substance: IRBESARTAN
  9. VIRAMUNE [Concomitant]
     Active Substance: NEVIRAPINE
  10. IBUPROFEN. [Concomitant]
     Active Substance: IBUPROFEN
  11. NICOTINELL PEPPERMINT [NICOTINE POLACRILEX] [Concomitant]
  12. ROSUVASTATIN. [Concomitant]
     Active Substance: ROSUVASTATIN
  13. ISENTRESS [Concomitant]
     Active Substance: RALTEGRAVIR POTASSIUM
  14. CHLORTHALIDONE. [Concomitant]
     Active Substance: CHLORTHALIDONE
  15. COMBIVIR [Concomitant]
     Active Substance: LAMIVUDINE\ZIDOVUDINE
  16. KALETRA [Concomitant]
     Active Substance: LOPINAVIR\RITONAVIR
  17. ASPIRIN ACTIV [Concomitant]
     Active Substance: ASPIRIN
  18. METHADONE [Concomitant]
     Active Substance: METHADONE HYDROCHLORIDE
  19. POLYETHYLENE [Concomitant]
     Active Substance: HIGH DENSITY POLYETHYLENE
  20. VIREAD [Suspect]
     Active Substance: TENOFOVIR DISOPROXIL FUMARATE
     Indication: HIV INFECTION
     Route: 065
  21. TRUVADA [Suspect]
     Active Substance: EMTRICITABINE\TENOFOVIR DISOPROXIL FUMARATE
     Indication: HIV INFECTION
     Dosage: UNK
     Route: 048
     Dates: start: 2004, end: 2012
  22. TERBINAFINE. [Concomitant]
     Active Substance: TERBINAFINE
  23. ERGOCALCIFEROL. [Concomitant]
     Active Substance: ERGOCALCIFEROL
  24. OXYCODONE [Concomitant]
     Active Substance: OXYCODONE
  25. INVIRASE [Concomitant]
     Active Substance: SAQUINAVIR MESYLATE

REACTIONS (12)
  - Loss of personal independence in daily activities [Not Recovered/Not Resolved]
  - Osteoporosis [Not Recovered/Not Resolved]
  - Pain [Not Recovered/Not Resolved]
  - Economic problem [Not Recovered/Not Resolved]
  - Anhedonia [Not Recovered/Not Resolved]
  - Decreased activity [Not Recovered/Not Resolved]
  - Quality of life decreased [Not Recovered/Not Resolved]
  - Emotional distress [Not Recovered/Not Resolved]
  - Anxiety [Not Recovered/Not Resolved]
  - Renal impairment [Not Recovered/Not Resolved]
  - Fear [Not Recovered/Not Resolved]
  - Mobility decreased [Not Recovered/Not Resolved]

NARRATIVE: CASE EVENT DATE: 2004
